FAERS Safety Report 7576347-7 (Version None)
Quarter: 2011Q2

REPORT INFORMATION
  Report Type: 
  Country: None (occurrence: None)
  Receive Date: 20110628
  Receipt Date: 20110531
  Transmission Date: 20111010
  Serious: Yes (Other)
  Sender: FDA-Public Use
  Company Number: US-BAYER-2011-001542

PATIENT
  Age: 31 Year
  Sex: Female
  Weight: 58.957 kg

DRUGS (4)
  1. XANAX [Concomitant]
     Indication: ANXIETY
     Dosage: UNK
     Dates: start: 20040101
  2. YAZ [Suspect]
     Indication: PREMENSTRUAL SYNDROME
     Dosage: UNK
     Dates: start: 20080528, end: 20091104
  3. METHOCARBAMOL [Concomitant]
     Dosage: 750 MG, UNK
     Dates: start: 20061223
  4. IBUPROFEN [Concomitant]
     Dosage: 800 MG, UNK
     Dates: start: 20080805

REACTIONS (10)
  - BILE DUCT STONE [None]
  - EMOTIONAL DISTRESS [None]
  - GALLBLADDER DISORDER [None]
  - CHOLELITHIASIS [None]
  - CHOLECYSTITIS [None]
  - ABDOMINAL PAIN UPPER [None]
  - MENTAL DISORDER [None]
  - INJURY [None]
  - FEAR [None]
  - ANXIETY [None]
